FAERS Safety Report 18579205 (Version 1)
Quarter: 2020Q4

REPORT INFORMATION
  Report Type: Spontaneous
  Country: IT (occurrence: IT)
  Receive Date: 20201204
  Receipt Date: 20201204
  Transmission Date: 20210114
  Serious: Yes (Death, Hospitalization, Other)
  Sender: FDA-Public Use
  Company Number: IT-HIKMA PHARMACEUTICALS USA INC.-IT-H14001-20-52746

PATIENT
  Age: 60 Year
  Sex: Male

DRUGS (8)
  1. NIVOLUMAB [Concomitant]
     Active Substance: NIVOLUMAB
     Indication: RENAL CANCER METASTATIC
     Dosage: ()
     Route: 065
     Dates: start: 201905, end: 201909
  2. ZOLEDRONIC ACID [Suspect]
     Active Substance: ZOLEDRONIC ACID
     Indication: RENAL CANCER METASTATIC
     Dosage: MONTHLY ; CYCLICAL
     Route: 042
     Dates: start: 2017, end: 201712
  3. CABOZANTINIB [Concomitant]
     Active Substance: CABOZANTINIB
     Indication: METASTASES TO CENTRAL NERVOUS SYSTEM
     Route: 048
  4. INTERLEUKIN-2 [Concomitant]
     Active Substance: ALDESLEUKIN
     Indication: METASTASES TO SPINE
     Dosage: 3 WEEKS A MONTH, TWICE A DAY FOR 5 DAYS A WEEK ; CYCLICAL
     Route: 058
     Dates: start: 201705, end: 201706
  5. DENOSUMAB [Suspect]
     Active Substance: DENOSUMAB
     Indication: METASTASES TO SPINE
     Route: 065
     Dates: start: 201712, end: 201909
  6. LEVOTHYROXINE. [Concomitant]
     Active Substance: LEVOTHYROXINE
     Indication: HYPOTHYROIDISM
  7. ENALAPRIL [Concomitant]
     Active Substance: ENALAPRIL
     Indication: HYPERTENSION
     Route: 065
  8. BEVACIZUMAB 25 MG/ML [Concomitant]
     Active Substance: BEVACIZUMAB
     Indication: METASTASES TO SPINE
     Dates: start: 201706, end: 201712

REACTIONS (5)
  - Bone loss [Unknown]
  - Tooth avulsion [Unknown]
  - Peri-implantitis [Unknown]
  - Jaw fracture [Unknown]
  - Osteonecrosis of jaw [Recovering/Resolving]

NARRATIVE: CASE EVENT DATE: 201910
